FAERS Safety Report 6542335-2 (Version None)
Quarter: 2010Q1

REPORT INFORMATION
  Report Type: 
  Country: None (occurrence: None)
  Receive Date: 20100119
  Receipt Date: 20100114
  Transmission Date: 20100710
  Serious: Yes (Hospitalization)
  Sender: FDA-Public Use
  Company Number: DE-ROCHE-647345

PATIENT
  Sex: Female
  Weight: 67 kg

DRUGS (8)
  1. AVASTIN [Suspect]
     Dosage: ADMINISTERED ON 15 JUNE 2009 AND ON 29 JUNE 2009
     Route: 042
     Dates: start: 20090615
  2. AVASTIN [Suspect]
     Dosage: 6TH CYCLE
     Route: 042
     Dates: end: 20091014
  3. CAMPTOSAR [Suspect]
     Dosage: ADMINISTERED ON 15 JUNE, 22 JUNE AND 29 JUNE 2009
     Route: 042
     Dates: start: 20090615
  4. CAMPTOSAR [Suspect]
     Dosage: 6TH CYCLE
     Route: 042
     Dates: end: 20091014
  5. FOLINIC ACID [Suspect]
     Dosage: ADMINISTERED ON 15 JUNE, 22 JUNE AND 29 JUNE 2009
     Route: 042
     Dates: start: 20090615
  6. FOLINIC ACID [Suspect]
     Dosage: 6TH CYCLE
     Route: 042
     Dates: end: 20091014
  7. 5-FLUOROURACIL [Suspect]
     Dosage: ADMINISTERED ON 15 JUNE, 22 JUNE AND 29 JUNE
     Route: 042
     Dates: start: 20090615
  8. 5-FLUOROURACIL [Suspect]
     Dosage: 6TH CYCLE
     Route: 042
     Dates: end: 20091014

REACTIONS (4)
  - COLITIS [None]
  - DIARRHOEA [None]
  - LARGE INTESTINE PERFORATION [None]
  - PERITONITIS [None]
